FAERS Safety Report 7376119-2 (Version None)
Quarter: 2011Q1

REPORT INFORMATION
  Report Type: 
  Country: None (occurrence: None)
  Receive Date: 20110325
  Receipt Date: 20110323
  Transmission Date: 20110831
  Serious: Yes (Other)
  Sender: FDA-Public Use
  Company Number: GXKR2011DE01287

PATIENT
  Sex: Male
  Weight: 2.69 kg

DRUGS (2)
  1. SEROQUEL [Suspect]
     Indication: DEPRESSION
     Dosage: 100 MG, QD
     Route: 064
     Dates: start: 20100601, end: 20100808
  2. VENLAFAXINE [Suspect]
     Indication: DEPRESSION
     Dosage: 150 MG, QD
     Route: 064
     Dates: start: 20091101, end: 20100808

REACTIONS (1)
  - SMALL FOR DATES BABY [None]
